FAERS Safety Report 4387620-8 (Version None)
Quarter: 2004Q2

REPORT INFORMATION
  Report Type: 
  Country: None (occurrence: None)
  Receive Date: 20040630
  Receipt Date: 20040520
  Transmission Date: 20050107
  Serious: No
  Sender: FDA-Public Use
  Company Number: US-GLAXOSMITHKLINE-A0511601A

PATIENT
  Sex: Female

DRUGS (3)
  1. ADVAIR HFA [Suspect]
     Indication: ILL-DEFINED DISORDER
     Route: 055
  2. VENTOLIN [Suspect]
     Indication: ILL-DEFINED DISORDER
     Route: 055
  3. NO CONCURRENT MEDICATION [Concomitant]

REACTIONS (1)
  - WHEEZING [None]
